FAERS Safety Report 5374950-6 (Version None)
Quarter: 2007Q2

REPORT INFORMATION
  Report Type: 
  Country: None (occurrence: None)
  Receive Date: 20070625
  Receipt Date: 20070417
  Transmission Date: 20071010
  Serious: Yes (Hospitalization)
  Sender: FDA-Public Use
  Company Number: 07P-163-0365667-00

PATIENT
  Age: 61 Year
  Sex: Female
  Weight: 81.6475 kg

DRUGS (13)
  1. HUMIRA [Suspect]
     Indication: POLYMYALGIA RHEUMATICA
     Dosage: 40 MG, 1 IN 2 WK, SUBCUTANEOUS; 40 MG, 1 IN 3 WK, SUBCUTANEOUS; 40 MG, 1 IN 1 WK, SUBCUTANEOUS
     Route: 058
     Dates: start: 20040201, end: 20060101
  2. HUMIRA [Suspect]
     Indication: POLYMYALGIA RHEUMATICA
     Dosage: 40 MG, 1 IN 2 WK, SUBCUTANEOUS; 40 MG, 1 IN 3 WK, SUBCUTANEOUS; 40 MG, 1 IN 1 WK, SUBCUTANEOUS
     Route: 058
     Dates: start: 20060101
  3. SALBUTAMOL [Concomitant]
  4. ADVAIR DISKUS 100/50 [Concomitant]
  5. SINGULAIR [Concomitant]
  6. LEVOTHYROXINE SODIUM [Concomitant]
  7. ACTOS [Concomitant]
  8. GLIMEPIRIDE [Concomitant]
  9. DURGESIC PATCH [Concomitant]
  10. VICODIN [Concomitant]
  11. GABAPENTIN [Concomitant]
  12. LUNESTA [Concomitant]
  13. GALENIC /CODEINE/PROMETHAZINE [Concomitant]

REACTIONS (4)
  - DRUG INEFFECTIVE [None]
  - GASTROENTERITIS VIRAL [None]
  - PNEUMONIA [None]
  - SINUSITIS [None]
